FAERS Safety Report 24741445 (Version 1)
Quarter: 2024Q4

REPORT INFORMATION
  Report Type: Spontaneous
  Country: US (occurrence: US)
  Receive Date: 20241217
  Receipt Date: 20241217
  Transmission Date: 20250114
  Serious: Yes (Other)
  Sender: ZYDUS PHARM
  Company Number: US-CADILA HEALTHCARE LIMITED-US-ZYDUS-116322

PATIENT

DRUGS (3)
  1. DOXORUBICIN [Suspect]
     Active Substance: DOXORUBICIN
     Indication: Yolk sac tumour site unspecified
     Dosage: 30 MILLIGRAM/SQ. METER OVER 15 MINUTES
     Route: 042
  2. CISPLATIN [Suspect]
     Active Substance: CISPLATIN
     Indication: Yolk sac tumour site unspecified
     Dosage: 30 MILLIGRAM/SQ. METER OVER 2 HOURS
     Route: 042
  3. PACLITAXEL [Suspect]
     Active Substance: PACLITAXEL
     Indication: Yolk sac tumour site unspecified
     Dosage: 100 MILLIGRAM/SQ. METER OVER 1 HOUR
     Route: 042

REACTIONS (1)
  - Ototoxicity [Unknown]
